FAERS Safety Report 6815006-2 (Version None)
Quarter: 2010Q2

REPORT INFORMATION
  Report Type: 
  Country: None (occurrence: None)
  Receive Date: 20100630
  Receipt Date: 20100630
  Transmission Date: 20101027
  Serious: Yes (Hospitalization)
  Sender: FDA-Public Use
  Company Number: None

PATIENT
  Sex: Female
  Weight: 49.4421 kg

DRUGS (1)
  1. AVASTIN [Suspect]
     Indication: BREAST CANCER METASTATIC
     Dosage: 15 MG/KG Q 21 DAYS IV DRIP
     Route: 041

REACTIONS (7)
  - CANDIDA TEST POSITIVE [None]
  - COUGH [None]
  - DYSPNOEA [None]
  - HAEMOGLOBIN DECREASED [None]
  - LYMPHOPENIA [None]
  - PYREXIA [None]
  - URINARY RETENTION [None]
